FAERS Safety Report 25506328 (Version 3)
Quarter: 2025Q3

REPORT INFORMATION
  Report Type: Spontaneous
  Country: US (occurrence: US)
  Receive Date: 20250702
  Receipt Date: 20250801
  Transmission Date: 20251020
  Serious: No
  Sender: SANOFI AVENTIS
  Company Number: US-SA-2025SA185300

PATIENT
  Age: 79 Year
  Sex: Female

DRUGS (22)
  1. DUPIXENT [Suspect]
     Active Substance: DUPILUMAB
     Indication: Eosinophilic oesophagitis
     Dosage: 300 MG, QW
     Route: 058
     Dates: start: 202506
  2. GABAPENTIN [Concomitant]
     Active Substance: GABAPENTIN
  3. RESTASIS [Concomitant]
     Active Substance: CYCLOSPORINE
  4. SYNTHROID [Concomitant]
     Active Substance: LEVOTHYROXINE SODIUM
  5. AZITHROMYCIN [Concomitant]
     Active Substance: AZITHROMYCIN
  6. BUTALBITAL [Concomitant]
     Active Substance: BUTALBITAL
  7. CLOPIDOGREL [Concomitant]
     Active Substance: CLOPIDOGREL BISULFATE
  8. DULOXETINE [Concomitant]
     Active Substance: DULOXETINE
  9. EPINEPHRINE [Concomitant]
     Active Substance: EPINEPHRINE
  10. FESOTERODINE [Concomitant]
     Active Substance: FESOTERODINE
  11. MAGNESIUM [Concomitant]
     Active Substance: MAGNESIUM
  12. MONTELUKAST [Concomitant]
     Active Substance: MONTELUKAST
  13. PANTOPRAZOLE [Concomitant]
     Active Substance: PANTOPRAZOLE
  14. POTASSIUM [Concomitant]
     Active Substance: POTASSIUM
  15. MINERALS\VITAMINS [Concomitant]
     Active Substance: MINERALS\VITAMINS
  16. TOBRAMYCIN [Concomitant]
     Active Substance: TOBRAMYCIN
  17. TRELEGY ELLIPTA [Concomitant]
     Active Substance: FLUTICASONE FUROATE\UMECLIDINIUM BROMIDE\VILANTEROL TRIFENATATE
  18. TRIAMTERENE [Concomitant]
     Active Substance: TRIAMTERENE
  19. VALIUM [Concomitant]
     Active Substance: DIAZEPAM
  20. VITAMIN D3 [Concomitant]
     Active Substance: CHOLECALCIFEROL
  21. ZINC [Concomitant]
     Active Substance: ZINC
  22. VITAMIN B12 [Concomitant]
     Active Substance: CYANOCOBALAMIN

REACTIONS (3)
  - Pruritus [Not Recovered/Not Resolved]
  - Injection site erythema [Recovered/Resolved]
  - Injection site swelling [Recovered/Resolved]

NARRATIVE: CASE EVENT DATE: 20250101
